FAERS Safety Report 6957629-6 (Version None)
Quarter: 2010Q3

REPORT INFORMATION
  Report Type: 
  Country: None (occurrence: None)
  Receive Date: 20100831
  Receipt Date: 20100818
  Transmission Date: 20110219
  Serious: Yes (Death, Other)
  Sender: FDA-Public Use
  Company Number: CA-ELI_LILLY_AND_COMPANY-CA201008001804

PATIENT
  Sex: Male

DRUGS (3)
  1. CYMBALTA [Suspect]
     Indication: DEPRESSION
     Dosage: 60 MG, UNK
     Dates: start: 20091029, end: 20091217
  2. RISPERDAL CONSTA [Concomitant]
  3. SEROQUEL [Concomitant]

REACTIONS (2)
  - COMA HEPATIC [None]
  - DEATH [None]
